FAERS Safety Report 4447400-1 (Version None)
Quarter: 2004Q3

REPORT INFORMATION
  Report Type: 
  Country: None (occurrence: None)
  Receive Date: 20040823
  Receipt Date: 20040708
  Transmission Date: 20050211
  Serious: Yes (Other)
  Sender: FDA-Public Use
  Company Number: PHEH2004US07395

PATIENT
  Sex: Female

DRUGS (2)
  1. ZELNORM [Suspect]
     Dosage: 6 MG BID ORAL
     Route: 048
  2. ANTIHYPERTENSIVES [Concomitant]

REACTIONS (1)
  - HYPOTENSION [None]
